FAERS Safety Report 20324423 (Version 3)
Quarter: 2023Q1

REPORT INFORMATION
  Report Type: Spontaneous
  Country: US (occurrence: US)
  Receive Date: 20220111
  Receipt Date: 20230302
  Transmission Date: 20230417
  Serious: No
  Sender: FDA-Public Use
  Company Number: US-PFIZER INC-202101710900

PATIENT
  Age: 52 Year
  Sex: Female

DRUGS (1)
  1. INLYTA [Suspect]
     Active Substance: AXITINIB
     Dosage: 5 MG
     Dates: start: 20211108

REACTIONS (10)
  - Product dose omission issue [Unknown]
  - Fatigue [Unknown]
  - Constipation [Unknown]
  - Hypertension [Unknown]
  - Malaise [Unknown]
  - Gastrointestinal disorder [Unknown]
  - Oral infection [Unknown]
  - Fungal skin infection [Not Recovered/Not Resolved]
  - Arthritis [Not Recovered/Not Resolved]
  - Bone pain [Not Recovered/Not Resolved]
